FAERS Safety Report 7526004-8 (Version None)
Quarter: 2011Q2

REPORT INFORMATION
  Report Type: 
  Country: None (occurrence: None)
  Receive Date: 20110606
  Receipt Date: 20110527
  Transmission Date: 20111010
  Serious: Yes (Other)
  Sender: FDA-Public Use
  Company Number: US-ASTRAZENECA-2011SE18461

PATIENT
  Age: 43 Year
  Sex: Female
  Weight: 63.5 kg

DRUGS (6)
  1. VIVELLE [Concomitant]
  2. PROZSC [Concomitant]
     Indication: DEPRESSION
     Route: 048
     Dates: start: 19930101
  3. CLONOPIN [Concomitant]
     Indication: ANXIETY
     Route: 048
     Dates: start: 19930101
  4. PROZSC [Concomitant]
     Indication: ANXIETY
     Route: 048
     Dates: start: 19930101
  5. CRESTOR [Suspect]
     Indication: PROPHYLAXIS
     Route: 048
     Dates: start: 20110103, end: 20110329
  6. CLONOPIN [Concomitant]
     Indication: DEPRESSION
     Route: 048
     Dates: start: 19930101

REACTIONS (5)
  - ARTHRALGIA [None]
  - DIZZINESS [None]
  - SPEECH DISORDER [None]
  - ADVERSE DRUG REACTION [None]
  - MEMORY IMPAIRMENT [None]
